FAERS Safety Report 16821072 (Version 1)
Quarter: 2019Q3

REPORT INFORMATION
  Report Type: Spontaneous
  Country: BR (occurrence: BR)
  Receive Date: 20190918
  Receipt Date: 20190918
  Transmission Date: 20191005
  Serious: Yes (Other)
  Sender: FDA-Public Use
  Company Number: BR-GLAXOSMITHKLINE-BR2019AMR151762

PATIENT
  Sex: Female

DRUGS (3)
  1. FLUIMUCIL [Concomitant]
     Active Substance: ACETYLCYSTEINE
     Indication: PRODUCT USED FOR UNKNOWN INDICATION
     Dosage: 5 ML, UNK(8HR)
     Route: 048
  2. ZINNAT [Suspect]
     Active Substance: CEFUROXIME
     Indication: ASTHMA
     Dosage: UNK,250 MG/5ML,(75ML)
     Route: 048
  3. ZINNAT [Suspect]
     Active Substance: CEFUROXIME
     Indication: RHINITIS
     Dosage: UNK,250 MG/5ML,(75ML)
     Route: 048
     Dates: start: 20190813

REACTIONS (4)
  - Product complaint [Unknown]
  - Wrong technique in product usage process [Unknown]
  - Pneumonia [Unknown]
  - Incorrect dosage administered [Unknown]
